FAERS Safety Report 8384788-3 (Version None)
Quarter: 2012Q2

REPORT INFORMATION
  Report Type: 
  Country: None (occurrence: None)
  Receive Date: 20120524
  Receipt Date: 20120328
  Transmission Date: 20120825
  Serious: Yes (Other)
  Sender: FDA-Public Use
  Company Number: CA-JNJFOC-20120112684

PATIENT
  Sex: Female

DRUGS (14)
  1. DILTIAZEM [Concomitant]
  2. CODEINE CONTIN [Concomitant]
  3. RATIO-OXYCOCET [Concomitant]
  4. AVANDAMET [Concomitant]
  5. PREDNISONE [Concomitant]
  6. ARTHROTEC [Concomitant]
  7. CO-ETIDROCAL [Concomitant]
  8. LANSOPRAZOLE [Concomitant]
  9. FEMHRT [Concomitant]
  10. HYDROCHLOROTHIAZIDE [Concomitant]
  11. MELOXICAM [Concomitant]
  12. SIMPONI [Suspect]
     Indication: ANKYLOSING SPONDYLITIS
     Route: 058
     Dates: start: 20111220
  13. MORPHINE [Concomitant]
  14. PALAFER [Concomitant]

REACTIONS (3)
  - SYNCOPE [None]
  - PRURITUS [None]
  - DIARRHOEA [None]
